FAERS Safety Report 5964379-1 (Version None)
Quarter: 2008Q4

REPORT INFORMATION
  Report Type: 
  Country: None (occurrence: None)
  Receive Date: 20081124
  Receipt Date: 20081118
  Transmission Date: 20090506
  Serious: Yes (Other)
  Sender: FDA-Public Use
  Company Number: DE-ALLERGAN-0814655US

PATIENT
  Sex: Male

DRUGS (3)
  1. RESTASIS [Suspect]
     Indication: EYE INFLAMMATION
     Dosage: UNK, UNK
     Route: 047
     Dates: start: 20040101
  2. CELLUFRESH [Concomitant]
     Indication: DRUG USE FOR UNKNOWN INDICATION
  3. OPTIVE [Concomitant]
     Indication: DRUG USE FOR UNKNOWN INDICATION

REACTIONS (2)
  - CORNEAL INFILTRATES [None]
  - VISION BLURRED [None]
